FAERS Safety Report 7250919-1 (Version None)
Quarter: 2011Q1

REPORT INFORMATION
  Report Type: 
  Country: None (occurrence: None)
  Receive Date: 20110128
  Receipt Date: 20110119
  Transmission Date: 20110831
  Serious: Yes (Other)
  Sender: FDA-Public Use
  Company Number: A0908752A

PATIENT
  Sex: Female

DRUGS (1)
  1. PAXIL [Suspect]
     Indication: DEPRESSION
     Route: 048
     Dates: start: 20040101

REACTIONS (15)
  - SCAR [None]
  - OBSESSIVE-COMPULSIVE DISORDER [None]
  - INFLUENZA LIKE ILLNESS [None]
  - NAUSEA [None]
  - FEELING ABNORMAL [None]
  - WEIGHT INCREASED [None]
  - CRYING [None]
  - DIZZINESS [None]
  - DEPENDENCE [None]
  - WITHDRAWAL SYNDROME [None]
  - DECREASED INTEREST [None]
  - ANGER [None]
  - DERMATILLOMANIA [None]
  - HOT FLUSH [None]
  - HOSTILITY [None]
